FAERS Safety Report 15722893 (Version 1)
Quarter: 2018Q4

REPORT INFORMATION
  Report Type: Spontaneous
  Country: GB (occurrence: GB)
  Receive Date: 20181214
  Receipt Date: 20181214
  Transmission Date: 20190205
  Serious: Yes (Death)
  Sender: FDA-Public Use
  Company Number: GB-JNJFOC-20181216631

PATIENT
  Age: 31 Year
  Sex: Female

DRUGS (6)
  1. FLAXEDIL [Suspect]
     Active Substance: GALLAMINE TRIETHIODIDE
     Indication: APPENDICECTOMY
     Route: 051
  2. FENTANYL. [Suspect]
     Active Substance: FENTANYL
     Indication: APPENDICECTOMY
     Route: 065
  3. DROPERIDOL. [Suspect]
     Active Substance: DROPERIDOL
     Indication: APPENDICECTOMY
     Route: 065
  4. NITROUS OXIDE. [Suspect]
     Active Substance: NITROUS OXIDE
     Indication: APPENDICECTOMY
     Route: 065
  5. LIDOCAINE HYDROCHLORIDE. [Suspect]
     Active Substance: LIDOCAINE HYDROCHLORIDE
     Indication: APPENDICECTOMY
     Route: 065
  6. THIOPENTAL [Suspect]
     Active Substance: THIOPENTAL
     Indication: APPENDICECTOMY
     Route: 065

REACTIONS (1)
  - Cardiac arrest [Fatal]

NARRATIVE: CASE EVENT DATE: 19740706
